FAERS Safety Report 7917797-6 (Version None)
Quarter: 2011Q4

REPORT INFORMATION
  Report Type: 
  Country: None (occurrence: None)
  Receive Date: 20111116
  Receipt Date: 20111109
  Transmission Date: 20120403
  Serious: Yes (Other)
  Sender: FDA-Public Use
  Company Number: CH-UCBSA-041397

PATIENT
  Sex: Female
  Weight: 57 kg

DRUGS (10)
  1. CARVEDILOL [Concomitant]
  2. LORAZEPAM [Concomitant]
     Dates: start: 20110917, end: 20110918
  3. CO-LISINOPRIL [Concomitant]
     Dosage: 20/12.5 MG ONCE DAILY
  4. KEPPRA [Suspect]
     Route: 048
     Dates: start: 20110908, end: 20110911
  5. LORAZEPAM [Concomitant]
     Dates: start: 20110914, end: 20110915
  6. DIAMICRON [Concomitant]
     Indication: DIABETES MELLITUS
     Dates: start: 20110908, end: 20110922
  7. LORAZEPAM [Concomitant]
     Dates: start: 20110913
  8. LORAZEPAM [Concomitant]
     Dates: start: 20110916
  9. LORAZEPAM [Concomitant]
     Dates: start: 20110908
  10. AMLODIPINE [Concomitant]

REACTIONS (1)
  - ELECTROCARDIOGRAM QT PROLONGED [None]
